FAERS Safety Report 6254508-7 (Version None)
Quarter: 2009Q3

REPORT INFORMATION
  Report Type: 
  Country: None (occurrence: None)
  Receive Date: 20090702
  Receipt Date: 20090623
  Transmission Date: 20100115
  Serious: Yes (Other)
  Sender: FDA-Public Use
  Company Number: FR-BRISTOL-MYERS SQUIBB COMPANY-14389662

PATIENT
  Age: 34 Year
  Sex: Male
  Weight: 83 kg

DRUGS (4)
  1. ERBITUX [Suspect]
     Indication: COLORECTAL CANCER
     Route: 042
     Dates: start: 20070801
  2. ELOXATIN [Suspect]
     Indication: COLORECTAL CANCER
     Dosage: BEGINNING OF MAY 2007, 25 MG/M2 DURING 4 DAYS EVERY 15 DAYS 20-MAR-2008, 20 MG/M2 SOLN FOR INJ
     Route: 042
     Dates: start: 20070505
  3. FLUOROURACIL [Suspect]
     Indication: COLORECTAL CANCER
     Dosage: BEGINNING OF MAY 2007:1000MG/M2, 20-MAR-2008: 800 MG/M2 FLUOROURACILE DAKOTA, SOLN FOR INJ
     Route: 042
     Dates: start: 20070505
  4. ELVORINE [Suspect]
     Indication: COLORECTAL CANCER
     Dosage: BEGINNING OF MAY 2007, 400MG/M2 WAS TAKEN. 20-MAR-2008: 300 MG/M2
     Route: 042
     Dates: start: 20070505

REACTIONS (4)
  - ANAEMIA MACROCYTIC [None]
  - DERMATITIS ACNEIFORM [None]
  - MEAN CELL VOLUME DECREASED [None]
  - MICROCYTIC ANAEMIA [None]
